FAERS Safety Report 7799537-7 (Version None)
Quarter: 2011Q4

REPORT INFORMATION
  Report Type: 
  Country: None (occurrence: None)
  Receive Date: 20111006
  Receipt Date: 20111006
  Transmission Date: 20120403
  Serious: Yes (Life-Threatening, Hospitalization, Other)
  Sender: FDA-Public Use
  Company Number: None

PATIENT
  Age: 24 Year
  Sex: Male
  Weight: 81.646 kg

DRUGS (1)
  1. MEFLOQUINE HYDROCHLORIDE [Suspect]
     Indication: MALARIA PROPHYLAXIS
     Dosage: 250MG
     Route: 048
     Dates: start: 20110325, end: 20110429

REACTIONS (5)
  - HALLUCINATIONS, MIXED [None]
  - PSYCHOTIC DISORDER [None]
  - MOOD ALTERED [None]
  - PERSONALITY CHANGE [None]
  - BRAIN STEM SYNDROME [None]
